APPROVED DRUG PRODUCT: HALOPERIDOL
Active Ingredient: HALOPERIDOL
Strength: 1MG
Dosage Form/Route: TABLET;ORAL
Application: A071217 | Product #001
Applicant: DURAMED PHARMACEUTICALS INC SUB BARR LABORATORIES INC
Approved: Dec 4, 1986 | RLD: No | RS: No | Type: DISCN